FAERS Safety Report 9025479 (Version 2)
Quarter: 2013Q1

REPORT INFORMATION
  Report Type: Spontaneous
  Country: JP (occurrence: JP)
  Receive Date: 20130122
  Receipt Date: 20130214
  Transmission Date: 20140127
  Serious: Yes (Death)
  Sender: FDA-Public Use
  Company Number: JP-PFIZER INC-2012284611

PATIENT
  Age: 68 Year
  Sex: Male
  Weight: 62.6 kg

DRUGS (21)
  1. CARDENALIN [Suspect]
     Indication: HYPERTENSION
     Dosage: 2 MG, 1X/DAY
     Route: 048
     Dates: start: 20120921, end: 20120927
  2. CARDENALIN [Suspect]
     Dosage: 4 MG, 1X/DAY
     Route: 048
     Dates: start: 20120928, end: 20121018
  3. PARIET [Concomitant]
     Indication: GASTRIC ULCER
     Dosage: 10 MG, 1X/DAY
     Route: 048
     Dates: start: 20100413, end: 20121123
  4. PROMAC D [Concomitant]
     Indication: GASTRIC ULCER
     Dosage: 75 MG, 2X/DAY
     Route: 048
     Dates: start: 20100414, end: 20121123
  5. ROHYPNOL [Concomitant]
     Indication: INSOMNIA
     Dosage: 1 MG, 1X/DAY
     Route: 048
     Dates: start: 20110126, end: 20121123
  6. CALTAN [Concomitant]
     Indication: HYPERPHOSPHATAEMIA
     Dosage: 500 MG, 3X/DAY
     Route: 048
     Dates: start: 20100818, end: 20101109
  7. CALTAN [Concomitant]
     Dosage: 1000 MG, 3X/DAY
     Route: 048
     Dates: start: 20101110, end: 20121123
  8. PHOSBLOCK [Concomitant]
     Indication: HYPERPHOSPHATAEMIA
     Dosage: 250 MG, 3X/DAY
     Route: 048
     Dates: start: 20110706, end: 20121123
  9. OLMETEC [Concomitant]
     Indication: HYPERTENSION
     Dosage: 20 MG, 4 TIMES A WEEK
     Route: 048
     Dates: start: 20111221, end: 20120209
  10. OLMETEC [Concomitant]
     Dosage: 20 MG, 1X/DAY
     Route: 048
     Dates: start: 20120210, end: 20121018
  11. ATELEC [Concomitant]
     Indication: HYPERTENSION
     Dosage: 10 MG, 1X/DAY
     Route: 048
     Dates: start: 20120111, end: 20121009
  12. ATELEC [Concomitant]
     Dosage: 10 MG, 2X/DAY
     Route: 048
     Dates: start: 20121010, end: 20121123
  13. REMITCH [Concomitant]
     Indication: PRURITUS
     Dosage: 2.5 UG, 1X/DAY
     Route: 048
     Dates: start: 20120718, end: 20121123
  14. AMOBAN [Concomitant]
     Indication: INSOMNIA
     Dosage: 7.5 MG, 1X/DAY
     Route: 048
     Dates: start: 20090313, end: 20121009
  15. AMOBAN [Concomitant]
     Dosage: 10 MG, 1X/DAY
     Route: 048
     Dates: start: 20121010, end: 20121120
  16. EPOGIN [Concomitant]
     Indication: NEPHROGENIC ANAEMIA
     Dosage: 1500 DF, WEEKLY
     Route: 042
     Dates: start: 20120727, end: 20121005
  17. EPOGIN [Concomitant]
     Dosage: 750 DF, WEEKLY
     Route: 042
     Dates: start: 20120820, end: 20121008
  18. EPOGIN [Concomitant]
     Dosage: 1500 DF, 2X/WEEK
     Route: 042
     Dates: start: 20121012, end: 20121123
  19. OXAROL [Concomitant]
     Indication: HYPERPARATHYROIDISM SECONDARY
     Dosage: 5.0 MG, 3 TIMES A WEEK
     Route: 042
     Dates: start: 20111216, end: 20120118
  20. OXAROL [Concomitant]
     Dosage: 5.0 MG, 2X/WEEK
     Route: 042
     Dates: start: 20120120, end: 20121123
  21. OXAROL [Concomitant]
     Dosage: 2.5 UG, WEEKLY
     Route: 042
     Dates: start: 20120321, end: 20121121

REACTIONS (3)
  - Sudden death [Fatal]
  - Drug eruption [Recovered/Resolved]
  - Eosinophil count increased [Recovered/Resolved]
